FAERS Safety Report 11139135 (Version 3)
Quarter: 2015Q3

REPORT INFORMATION
  Report Type: Spontaneous
  Country: DE (occurrence: None)
  Receive Date: 20150522
  Receipt Date: 20150715
  Transmission Date: 20151125
  Serious: Yes (Disabling, Other)
  Sender: FDA-Public Use
  Company Number: DEP_02883_2015

PATIENT
  Sex: Female

DRUGS (1)
  1. PALEXIA [Suspect]
     Active Substance: TAPENTADOL HYDROCHLORIDE
     Indication: PAIN
     Route: 048

REACTIONS (12)
  - Incontinence [None]
  - Economic problem [None]
  - Skin disorder [None]
  - Psoriasis [None]
  - Oedema peripheral [None]
  - Seborrhoeic dermatitis [None]
  - Androgenetic alopecia [None]
  - Hair growth abnormal [None]
  - Stress [None]
  - Seborrhoeic keratosis [None]
  - Skin discolouration [None]
  - Pruritus [None]

NARRATIVE: CASE EVENT DATE: 20140707
